FAERS Safety Report 24210034 (Version 1)
Quarter: 2024Q3

REPORT INFORMATION
  Report Type: Spontaneous
  Country: US (occurrence: US)
  Receive Date: 20240814
  Receipt Date: 20240814
  Transmission Date: 20241017
  Serious: Yes (Other)
  Sender: APPCO PHARMA
  Company Number: US-Appco Pharma LLC-2160406

PATIENT
  Age: 12 Month
  Sex: Male

DRUGS (7)
  1. VENLAFAXINE [Suspect]
     Active Substance: VENLAFAXINE HYDROCHLORIDE
     Indication: Product used for unknown indication
     Route: 064
     Dates: start: 20230111
  2. LURASIDONE HYDROCHLORIDE [Suspect]
     Active Substance: LURASIDONE HYDROCHLORIDE
     Route: 064
     Dates: start: 20230111
  3. Insulin (NPH) [Concomitant]
     Route: 064
     Dates: start: 20230823
  4. ONDANSETRON [Concomitant]
     Active Substance: ONDANSETRON
     Route: 064
     Dates: start: 20230405
  5. MELOXICAM [Concomitant]
     Active Substance: MELOXICAM
     Route: 064
     Dates: start: 20230111, end: 20230215
  6. CLONAZEPAM [Concomitant]
     Active Substance: CLONAZEPAM
     Route: 064
     Dates: start: 20230111, end: 20230215
  7. Amphetamine mix IR [Concomitant]
     Route: 064
     Dates: start: 20230111

REACTIONS (3)
  - Foetal exposure during pregnancy [Unknown]
  - Neonatal respiratory distress [Unknown]
  - Hypotonia neonatal [Unknown]
